FAERS Safety Report 7534623-8 (Version None)
Quarter: 2011Q2

REPORT INFORMATION
  Report Type: 
  Country: None (occurrence: None)
  Receive Date: 20110609
  Receipt Date: 20100915
  Transmission Date: 20111010
  Serious: Yes (Other)
  Sender: FDA-Public Use
  Company Number: PHHY2010NO61035

PATIENT
  Sex: Male

DRUGS (10)
  1. SOBRIL [Concomitant]
  2. OXYCODONE HCL [Concomitant]
  3. ZOLADEX [Concomitant]
  4. PREDNISOLONE [Concomitant]
  5. AFIPRAN [Concomitant]
  6. BUMETANIDE [Concomitant]
  7. SAROTEX [Concomitant]
  8. LYRICA [Concomitant]
  9. ESCITALOPRAM [Concomitant]
  10. ZOMETA [Suspect]
     Indication: PROSTATE CANCER METASTATIC
     Dosage: UNK
     Route: 042
     Dates: start: 20100620

REACTIONS (1)
  - OSTEONECROSIS OF JAW [None]
